FAERS Safety Report 12638970 (Version 21)
Quarter: 2022Q4

REPORT INFORMATION
  Report Type: Spontaneous
  Country: CL (occurrence: CL)
  Receive Date: 20160809
  Receipt Date: 20221221
  Transmission Date: 20230113
  Serious: Yes (Other)
  Sender: FDA-Public Use
  Company Number: CL-BIOMARINAP-CL-2016-110693

PATIENT

DRUGS (4)
  1. ALDURAZYME [Suspect]
     Active Substance: LARONIDASE
     Indication: Mucopolysaccharidosis I
     Dosage: 3 DF (8.7 MG), QW (VIAL AMPOULE 2.9MG/ML; DOSE: 8.7 MG)
     Route: 041
  2. AZITHROMYCIN [Concomitant]
     Active Substance: AZITHROMYCIN
     Indication: Product used for unknown indication
     Dosage: 20MG
  3. PREDNISONE [Concomitant]
     Active Substance: PREDNISONE
     Indication: Product used for unknown indication
     Dosage: 20 MG FOR 5 DAYS
  4. FLUTICASONE FUROATE [Concomitant]
     Active Substance: FLUTICASONE FUROATE
     Indication: Product used for unknown indication
     Dosage: UNK UNK, BID

REACTIONS (21)
  - Ulcerative keratitis [Recovered/Resolved]
  - Salivary hypersecretion [Recovered/Resolved]
  - Rhinitis [Recovered/Resolved]
  - Cough [Recovered/Resolved]
  - Photophobia [Recovered/Resolved]
  - Ear infection [Recovered/Resolved]
  - Pyrexia [Recovered/Resolved]
  - Vomiting [Unknown]
  - Nasopharyngitis [Recovered/Resolved]
  - Bronchitis [Recovered/Resolved]
  - Eye ulcer [Recovered/Resolved]
  - Exposure to SARS-CoV-2 [Recovered/Resolved]
  - COVID-19 [Unknown]
  - Suspected COVID-19 [Not Recovered/Not Resolved]
  - Bronchitis [Recovered/Resolved]
  - Rhinitis [Unknown]
  - Cough [Unknown]
  - Fatigue [Unknown]
  - Asthma [Unknown]
  - Headache [Unknown]
  - Diarrhoea [Recovered/Resolved]

NARRATIVE: CASE EVENT DATE: 20160711
